FAERS Safety Report 24653430 (Version 2)
Quarter: 2024Q4

REPORT INFORMATION
  Report Type: Spontaneous
  Country: US (occurrence: US)
  Receive Date: 20241122
  Receipt Date: 20241126
  Transmission Date: 20250114
  Serious: No
  Sender: TRAVERE THERAPEUTICS
  Company Number: US-TRAVERE-2024TVT01169

PATIENT
  Sex: Female

DRUGS (1)
  1. FILSPARI [Suspect]
     Active Substance: SPARSENTAN
     Indication: IgA nephropathy
     Route: 048

REACTIONS (6)
  - Hyperhidrosis [Unknown]
  - Dyspnoea [None]
  - Abdominal distension [Unknown]
  - Swelling [Unknown]
  - Headache [Unknown]
  - Palpitations [Unknown]
